FAERS Safety Report 23299416 (Version 2)
Quarter: 2024Q1

REPORT INFORMATION
  Report Type: Spontaneous
  Country: US (occurrence: US)
  Receive Date: 20231215
  Receipt Date: 20240105
  Transmission Date: 20240410
  Serious: No
  Sender: FDA-Public Use
  Company Number: US-JNJFOC-20231225639

PATIENT
  Age: 70 Year
  Sex: Male

DRUGS (16)
  1. OPSUMIT [Suspect]
     Active Substance: MACITENTAN
     Indication: Product used for unknown indication
     Dosage: 10 MG TAB TAKE 1 TAB BY MOUTH ONCE DAILY
     Route: 048
     Dates: start: 20230915
  2. TREPROSTINIL SODIUM [Suspect]
     Active Substance: TREPROSTINIL SODIUM
     Indication: Pulmonary arterial hypertension
     Dosage: (SELF-FILL WITH 3 ML PER CASSETTE, RATE OF 48 MCL PER HOUR
     Route: 058
     Dates: start: 2023
  3. KETAMINE HYDROCHLORIDE [Concomitant]
     Active Substance: KETAMINE HYDROCHLORIDE
  4. LECITHIN [Concomitant]
     Active Substance: LECITHIN
  5. TADALAFIL [Concomitant]
     Active Substance: TADALAFIL
  6. DICLOFENAC SODIUM [Concomitant]
     Active Substance: DICLOFENAC\DICLOFENAC SODIUM
  7. CLONIDINE [Concomitant]
     Active Substance: CLONIDINE
  8. KETOPROFEN [Concomitant]
     Active Substance: KETOPROFEN
  9. OXYGEN [Concomitant]
     Active Substance: OXYGEN
  10. LIDOCAINE HYDROCHLORIDE [Concomitant]
     Active Substance: LIDOCAINE HYDROCHLORIDE
  11. OMEPRAZOLE [Concomitant]
     Active Substance: OMEPRAZOLE
  12. AMITRIPTYLINE HYDROCHLORIDE [Concomitant]
     Active Substance: AMITRIPTYLINE HYDROCHLORIDE
  13. GABAPENTIN [Concomitant]
     Active Substance: GABAPENTIN
  14. POLOXAMER [Concomitant]
     Active Substance: POLOXAMER
  15. MINOCYCLINE HYDROCHLORIDE [Concomitant]
     Active Substance: MINOCYCLINE HYDROCHLORIDE
  16. TYLENOL [Concomitant]
     Active Substance: ACETAMINOPHEN

REACTIONS (5)
  - Pain [Unknown]
  - Swelling [Unknown]
  - Pain of skin [Recovering/Resolving]
  - Peripheral swelling [Recovering/Resolving]
  - Pain [Recovering/Resolving]
